FAERS Safety Report 4908906-1 (Version None)
Quarter: 2006Q1

REPORT INFORMATION
  Report Type: 
  Country: None (occurrence: None)
  Receive Date: 20060210
  Receipt Date: 20060207
  Transmission Date: 20060701
  Serious: Yes (Other)
  Sender: FDA-Public Use
  Company Number: JP-SANOFI-SYNTHELABO-F01200600332

PATIENT
  Sex: Male
  Weight: 42 kg

DRUGS (3)
  1. OXALIPLATIN [Suspect]
     Indication: COLON CANCER
     Route: 042
     Dates: start: 20050926, end: 20050926
  2. FLUOROURACIL [Suspect]
     Dosage: 500MG/BODY=381.7MG/M2 IN BOLUS THEN 750MG/BODY=572.5MG/M2 AS CONTINUOUS INFUSION ON DAYS 1 AND 2
     Route: 042
     Dates: start: 20050926, end: 20050927
  3. CALCIUM LEVOFOLINATE [Suspect]
     Route: 042
     Dates: start: 20050926, end: 20050927

REACTIONS (7)
  - CEREBRAL HAEMORRHAGE [None]
  - CONDITION AGGRAVATED [None]
  - DIZZINESS [None]
  - GAIT DISTURBANCE [None]
  - METASTASES TO CENTRAL NERVOUS SYSTEM [None]
  - METASTASES TO LIVER [None]
  - NAUSEA [None]
